FAERS Safety Report 26146625 (Version 2)
Quarter: 2025Q4

REPORT INFORMATION
  Report Type: Report from Study
  Country: IN (occurrence: IN)
  Receive Date: 20251211
  Receipt Date: 20251224
  Transmission Date: 20260119
  Serious: Yes (Death)
  Sender: ALEXION PHARMACEUTICALS
  Company Number: IN-AstraZeneca-CH-01012213A

PATIENT
  Age: 73 Year
  Sex: Male
  Weight: 69 kg

DRUGS (1)
  1. DURVALUMAB [Suspect]
     Active Substance: DURVALUMAB
     Indication: Biliary cancer metastatic
     Dosage: 500 MILLIGRAM, Q3W

REACTIONS (3)
  - Death [Fatal]
  - Laziness [Unknown]
  - Asthenia [Unknown]

NARRATIVE: CASE EVENT DATE: 20251029
